FAERS Safety Report 6696227-9 (Version None)
Quarter: 2010Q2

REPORT INFORMATION
  Report Type: 
  Country: None (occurrence: None)
  Receive Date: 20100421
  Receipt Date: 20081006
  Transmission Date: 20101027
  Serious: Yes (Life-Threatening, Hospitalization)
  Sender: FDA-Public Use
  Company Number: WAES 0804FRA00022

PATIENT
  Age: 54 Year
  Sex: Female

DRUGS (10)
  1. CAP VORINOSTAT [Suspect]
     Indication: NON-SMALL CELL LUNG CANCER
     Dosage: 400 MG/DAILY, PO
     Route: 048
     Dates: start: 20080317, end: 20080330
  2. CAP VORINOSTAT [Suspect]
     Indication: NON-SMALL CELL LUNG CANCER
     Dosage: 400 MG/DAILY, PO
     Route: 048
     Dates: start: 20080414, end: 20080425
  3. CAP VORINOSTAT [Suspect]
     Indication: NON-SMALL CELL LUNG CANCER
     Dosage: 400 MG/DAILY, PO
     Route: 048
     Dates: start: 20080519, end: 20090528
  4. GEMCITABINE [Suspect]
     Indication: NON-SMALL CELL LUNG CANCER
     Dosage: 1250 MG/M2 MG/M [2] DAILY,  IV; 1000 MG/M [2], IV; 1580 MG /DAILY, IV
     Route: 042
     Dates: start: 20080319, end: 20080319
  5. GEMCITABINE [Suspect]
     Indication: NON-SMALL CELL LUNG CANCER
     Dosage: 1250 MG/M2 MG/M [2] DAILY,  IV; 1000 MG/M [2], IV; 1580 MG /DAILY, IV
     Route: 042
     Dates: start: 20080326, end: 20080326
  6. GEMCITABINE [Suspect]
     Indication: NON-SMALL CELL LUNG CANCER
     Dosage: 1250 MG/M2 MG/M [2] DAILY,  IV; 1000 MG/M [2], IV; 1580 MG /DAILY, IV
     Route: 042
     Dates: start: 20080416, end: 20080416
  7. GEMCITABINE [Suspect]
     Indication: NON-SMALL CELL LUNG CANCER
     Dosage: 1250 MG/M2 MG/M [2] DAILY,  IV; 1000 MG/M [2], IV; 1580 MG /DAILY, IV
     Route: 042
     Dates: start: 20080521, end: 20080521
  8. CISPLATIN [Suspect]
     Indication: NON-SMALL CELL LUNG CANCER
     Dosage: 75 MG/M2 MG/M [2]/ DAILY/ IV; 75 MG/M [2] IV; 95 MG/DAILY IV
     Route: 042
     Dates: start: 20080416, end: 20080416
  9. CISPLATIN [Suspect]
     Indication: NON-SMALL CELL LUNG CANCER
     Dosage: 75 MG/M2 MG/M [2]/ DAILY/ IV; 75 MG/M [2] IV; 95 MG/DAILY IV
     Route: 042
     Dates: start: 20080521, end: 20080521
  10. CISPLATIN [Suspect]
     Indication: NON-SMALL CELL LUNG CANCER
     Dosage: 75 MG/M2 MG/M [2]/ DAILY/ IV; 75 MG/M [2] IV; 95 MG/DAILY IV
     Route: 042
     Dates: start: 20080319, end: 20090319

REACTIONS (6)
  - DEHYDRATION [None]
  - EPISTAXIS [None]
  - FEBRILE NEUTROPENIA [None]
  - GENERAL PHYSICAL HEALTH DETERIORATION [None]
  - PLEURISY [None]
  - THROMBOCYTOPENIA [None]
